FAERS Safety Report 15632538 (Version 1)
Quarter: 2018Q4

REPORT INFORMATION
  Report Type: Spontaneous
  Country: US (occurrence: US)
  Receive Date: 20181119
  Receipt Date: 20181119
  Transmission Date: 20190205
  Serious: Yes (Other)
  Sender: FDA-Public Use
  Company Number: None

PATIENT
  Age: 10 Year
  Sex: Male
  Weight: 31.95 kg

DRUGS (2)
  1. ADYNOVATE [Suspect]
     Active Substance: ANTIHEMOPHILIC FACTOR, HUMAN RECOMBINANT
     Indication: FACTOR VIII DEFICIENCY
     Dosage: ?          OTHER FREQUENCY:ONCE PER WEEK, PRN;?
     Route: 042
     Dates: start: 20181023, end: 20181115
  2. ADYNOVATE [Suspect]
     Active Substance: ANTIHEMOPHILIC FACTOR, HUMAN RECOMBINANT
     Indication: FACTOR VIII DEFICIENCY
     Dosage: ?          OTHER FREQUENCY:ONCE PER WEEK, PRN;?
     Route: 042
     Dates: start: 20181023, end: 20181115

REACTIONS (2)
  - Infusion site pruritus [None]
  - Infusion site mass [None]

NARRATIVE: CASE EVENT DATE: 20181110
